FAERS Safety Report 12212808 (Version 2)
Quarter: 2016Q2

REPORT INFORMATION
  Report Type: Spontaneous
  Country: US (occurrence: US)
  Receive Date: 20160328
  Receipt Date: 20160411
  Transmission Date: 20160815
  Serious: Yes (Other)
  Sender: FDA-Public Use
  Company Number: US-PFIZER INC-2016158205

PATIENT
  Age: 54 Year
  Sex: Female
  Weight: 122.92 kg

DRUGS (13)
  1. AMITRIPTYLINE [Suspect]
     Active Substance: AMITRIPTYLINE
     Indication: DIABETIC NEUROPATHY
     Dosage: 10 MG, 1X/DAY
     Dates: start: 201601
  2. KAZANO [Concomitant]
     Active Substance: ALOGLIPTIN BENZOATE\METFORMIN HYDROCHLORIDE
     Indication: DIABETES MELLITUS
     Dosage: [METFORMIN 500 MG/ ALOGLIPTIN 12.5], 2X/DAY
  3. LYRICA [Suspect]
     Active Substance: PREGABALIN
     Dosage: 50 IN THE MORNING AND 100 AT NIGHT
     Route: 048
     Dates: start: 20160303
  4. VITAMIN D3 [Concomitant]
     Active Substance: CHOLECALCIFEROL
     Dosage: 2000 IU, 1X/DAY
  5. LYRICA [Suspect]
     Active Substance: PREGABALIN
     Dosage: 50 MG IN MORNING AND 50 AT NIGHT
  6. TRAMADOL. [Suspect]
     Active Substance: TRAMADOL
     Indication: PAIN
     Dosage: 50 MG, 2X/DAY,ONE IN THE MORNING AND ONE IN NIGHT
  7. CYMBALTA [Concomitant]
     Active Substance: DULOXETINE HYDROCHLORIDE
     Indication: DIABETIC NEUROPATHY
     Dosage: UNK
     Dates: start: 201510, end: 201512
  8. AMITRIPTYLINE [Suspect]
     Active Substance: AMITRIPTYLINE
     Dosage: 30 MG, UNK
     Dates: end: 201602
  9. PRAVASTATIN [Concomitant]
     Active Substance: PRAVASTATIN\PRAVASTATIN SODIUM
     Indication: BLOOD CHOLESTEROL ABNORMAL
     Dosage: UNK, 1X/DAY
  10. LYRICA [Suspect]
     Active Substance: PREGABALIN
     Indication: DIABETIC NEPHROPATHY
     Dosage: 50 MG QAM + 100MG QHS
     Route: 048
     Dates: start: 20150316
  11. LYRICA [Suspect]
     Active Substance: PREGABALIN
     Dosage: 50 MG IN MORNING AND 75 AT NIGHT
     Dates: start: 201508
  12. LISINOPRIL AND HYDROCHLOROTHIAZIDE [Concomitant]
     Active Substance: HYDROCHLOROTHIAZIDE\LISINOPRIL
     Indication: BLOOD PRESSURE ABNORMAL
     Dosage: [LISINOPRIL 12.5MG]/[HIDROCLOROTIAZIDA 25MG], 1X/DAY
  13. VITAMIN B12 [Concomitant]
     Active Substance: CYANOCOBALAMIN
     Indication: VITAMIN B12 DEFICIENCY
     Dosage: 500 UG, 1X/DAY

REACTIONS (14)
  - Restlessness [Unknown]
  - Drug intolerance [Unknown]
  - Feeling drunk [Unknown]
  - Insomnia [Unknown]
  - Dry mouth [Unknown]
  - Visual acuity reduced [Unknown]
  - Condition aggravated [Unknown]
  - Disturbance in attention [Unknown]
  - Intentional product misuse [Unknown]
  - Impaired driving ability [Unknown]
  - Impaired work ability [Unknown]
  - Somnolence [Unknown]
  - Pain [Unknown]
  - Tachyphrenia [Not Recovered/Not Resolved]
